FAERS Safety Report 14335413 (Version 1)
Quarter: 2017Q4

REPORT INFORMATION
  Report Type: Spontaneous
  Country: US (occurrence: US)
  Receive Date: 20171229
  Receipt Date: 20171229
  Transmission Date: 20180321
  Serious: No
  Sender: FDA-Public Use
  Company Number: PHEH2017US041724

PATIENT
  Sex: Female

DRUGS (1)
  1. AMITRIPTYLINE HCL TABLETS USP [Suspect]
     Active Substance: AMITRIPTYLINE HYDROCHLORIDE
     Indication: STRESS
     Dosage: 0.5 DF, UNK
     Route: 065

REACTIONS (4)
  - Fatigue [Unknown]
  - Herpes zoster [Unknown]
  - Ear discomfort [Unknown]
  - Dizziness [Unknown]
